FAERS Safety Report 5713342-4 (Version None)
Quarter: 2008Q2

REPORT INFORMATION
  Report Type: 
  Country: None (occurrence: None)
  Receive Date: 20080422
  Receipt Date: 20080410
  Transmission Date: 20081010
  Serious: Yes (Life-Threatening, Other)
  Sender: FDA-Public Use
  Company Number: JP-PFIZER INC-2007108672

PATIENT
  Sex: Male

DRUGS (6)
  1. CEFPODOXIME PROXETIL [Suspect]
     Indication: INFECTION
     Route: 048
     Dates: start: 20070501, end: 20070505
  2. CEFPODOXIME PROXETIL [Suspect]
     Indication: OSTEITIS DEFORMANS
  3. CEFAZOLIN SODIUM [Suspect]
     Route: 042
  4. LEVOFLOXACIN [Concomitant]
     Dates: start: 20070519, end: 20070520
  5. NORVASC [Concomitant]
     Indication: HYPERTENSION
     Route: 048
     Dates: start: 20030101, end: 20070520
  6. MUCOSOLVAN [Concomitant]
     Route: 048
     Dates: start: 20030101, end: 20070520

REACTIONS (2)
  - GASTROENTERITIS STAPHYLOCOCCAL [None]
  - SEPSIS [None]
